FAERS Safety Report 9608021 (Version 1)
Quarter: 2013Q4

REPORT INFORMATION
  Report Type: Spontaneous
  Country: US (occurrence: None)
  Receive Date: 20131007
  Receipt Date: 20131007
  Transmission Date: 20140711
  Serious: Yes (Death)
  Sender: FDA-Public Use
  Company Number: None

PATIENT
  Age: 17 Year
  Sex: Female
  Weight: 49.44 kg

DRUGS (2)
  1. ETHINYL ESTRADIOL\LEVONORGESTREL [Suspect]
     Route: 048
     Dates: start: 20130904
  2. PLAN B ONE-STEP [Suspect]
     Route: 048
     Dates: start: 20130904, end: 20130904

REACTIONS (3)
  - Gastrooesophageal reflux disease [None]
  - Aggression [None]
  - Completed suicide [None]
